FAERS Safety Report 8117921-9 (Version None)
Quarter: 2012Q1

REPORT INFORMATION
  Report Type: 
  Country: None (occurrence: None)
  Receive Date: 20120207
  Receipt Date: 20120131
  Transmission Date: 20120608
  Serious: Yes (Other)
  Sender: FDA-Public Use
  Company Number: US-TEVA-313602USA

PATIENT
  Sex: Female

DRUGS (1)
  1. COPAXONE [Suspect]
     Indication: MULTIPLE SCLEROSIS
     Dosage: 20 MILLIGRAM;
     Route: 058
     Dates: start: 20060302

REACTIONS (8)
  - OESOPHAGEAL SPASM [None]
  - URTICARIA [None]
  - AUTOIMMUNE DISORDER [None]
  - OEDEMA PERIPHERAL [None]
  - EYELID OEDEMA [None]
  - TONGUE OEDEMA [None]
  - SWELLING FACE [None]
  - LIP SWELLING [None]
